FAERS Safety Report 15493177 (Version 1)
Quarter: 2018Q4

REPORT INFORMATION
  Report Type: Spontaneous
  Country: KP (occurrence: KP)
  Receive Date: 20181012
  Receipt Date: 20181012
  Transmission Date: 20190205
  Serious: Yes (Hospitalization, Other)
  Sender: FDA-Public Use
  Company Number: KP-MACLEODS PHARMACEUTICALS US LTD-MAC2018016879

PATIENT

DRUGS (4)
  1. VENLAFAXINE [Suspect]
     Active Substance: VENLAFAXINE HYDROCHLORIDE
     Indication: HELPLESSNESS
     Dosage: 1 DOSAGE FORM, QD, TABLET
     Route: 065
  2. VENLAFAXINE [Suspect]
     Active Substance: VENLAFAXINE HYDROCHLORIDE
     Indication: DEPRESSION
  3. VENLAFAXINE [Suspect]
     Active Substance: VENLAFAXINE HYDROCHLORIDE
     Indication: INSOMNIA
     Dosage: 40 MILLIGRAM, SINGLE, TOTAL OF 3G TABLET
     Route: 048
  4. VENLAFAXINE [Suspect]
     Active Substance: VENLAFAXINE HYDROCHLORIDE
     Indication: SUICIDE ATTEMPT

REACTIONS (15)
  - Alanine aminotransferase increased [Recovered/Resolved]
  - Rhabdomyolysis [Recovered/Resolved]
  - Body temperature decreased [Recovering/Resolving]
  - Sciatic nerve neuropathy [Recovering/Resolving]
  - Stupor [Recovered/Resolved]
  - Aspartate aminotransferase increased [Recovered/Resolved]
  - Oliguria [Unknown]
  - Hypotension [Unknown]
  - Compartment syndrome [Recovering/Resolving]
  - Intentional overdose [Recovering/Resolving]
  - Mydriasis [Recovered/Resolved]
  - Electrocardiogram QT prolonged [Recovering/Resolving]
  - Sciatica [Unknown]
  - Blood calcium increased [Recovered/Resolved]
  - Muscle necrosis [Recovering/Resolving]
